FAERS Safety Report 10625735 (Version 1)
Quarter: 2014Q4

REPORT INFORMATION
  Report Type: Spontaneous
  Country: US (occurrence: None)
  Receive Date: 20141121
  Receipt Date: 20141121
  Transmission Date: 20150529
  Serious: No
  Sender: FDA-Public Use
  Company Number: 163-10004-14071336

PATIENT
  Age: 48 Year
  Sex: Female

DRUGS (9)
  1. OTEZLA [Suspect]
     Active Substance: APREMILAST
     Indication: PSORIATIC ARTHROPATHY
     Route: 048
     Dates: start: 20140512
  2. METHOTREXATE [Concomitant]
     Active Substance: METHOTREXATE
  3. PAXIL CR [Concomitant]
     Active Substance: PAROXETINE HYDROCHLORIDE
  4. IRBESARTAN. [Concomitant]
     Active Substance: IRBESARTAN
  5. FOLIC ACID. [Concomitant]
     Active Substance: FOLIC ACID
  6. PREDNISONE. [Concomitant]
     Active Substance: PREDNISONE
  7. LASIX [Concomitant]
     Active Substance: FUROSEMIDE
  8. NEXIUM [Concomitant]
     Active Substance: ESOMEPRAZOLE MAGNESIUM
  9. VITAMIN D2 [Concomitant]
     Active Substance: ERGOCALCIFEROL

REACTIONS (1)
  - Nausea [None]
